FAERS Safety Report 10031362 (Version 1)
Quarter: 2014Q1

REPORT INFORMATION
  Report Type: Spontaneous
  Country: US (occurrence: US)
  Receive Date: 20140324
  Receipt Date: 20140324
  Transmission Date: 20141002
  Serious: No
  Sender: FDA-Public Use
  Company Number: US-009507513-1403USA005489

PATIENT
  Age: 29 Year
  Sex: Male

DRUGS (3)
  1. PROSCAR [Suspect]
     Indication: ALOPECIA
     Dosage: 1.25 MG, QD
  2. GABAPENTIN [Concomitant]
  3. ZOLOFT [Concomitant]

REACTIONS (3)
  - Therapeutic response decreased [Not Recovered/Not Resolved]
  - Drug administration error [Unknown]
  - Wrong technique in drug usage process [Unknown]
